FAERS Safety Report 25094942 (Version 3)
Quarter: 2025Q4

REPORT INFORMATION
  Report Type: Spontaneous
  Country: GB (occurrence: GB)
  Receive Date: 20250319
  Receipt Date: 20251107
  Transmission Date: 20260117
  Serious: Yes (Other)
  Sender: SHIELD THERAPEUTICS
  Company Number: None

PATIENT

DRUGS (17)
  1. IRON [Suspect]
     Active Substance: IRON
     Indication: Blood iron decreased
     Dosage: UNK
     Route: 065
     Dates: start: 202409
  2. UTROGESTAN [Suspect]
     Active Substance: PROGESTERONE
     Indication: Hormone replacement therapy
     Dosage: 1 DOSAGE FORM, QD-1 DOSAGE FORM DAILY
     Route: 065
     Dates: start: 202010, end: 2021
  3. UTROGESTAN [Suspect]
     Active Substance: PROGESTERONE
     Dosage: UNKNOWN-QD-ONCE DAILY
     Route: 065
     Dates: start: 202203, end: 202308
  4. UTROGESTAN [Suspect]
     Active Substance: PROGESTERONE
     Dosage: 2 DOSAGE FORM, QD-AT NIGHT
     Route: 065
     Dates: start: 202308
  5. UTROGESTAN [Suspect]
     Active Substance: PROGESTERONE
     Dosage: UNK
     Route: 065
     Dates: start: 202203, end: 20220906
  6. UTROGESTAN [Suspect]
     Active Substance: PROGESTERONE
     Dosage: UNK UNK, QD
     Route: 065
     Dates: start: 2022, end: 2023
  7. ESTRADIOL [Suspect]
     Active Substance: ESTRADIOL
     Indication: Hormone replacement therapy
     Dosage: 2 DOSAGE FORM, QD-750 MICROGRAMS/-OESTROGEL PUMP PACK (WHITE CAPPED BOTTLE)2 PUMPS OF GEL EVERY MORN
     Route: 065
     Dates: start: 202010, end: 202110
  8. ESTRADIOL [Suspect]
     Active Substance: ESTRADIOL
     Dosage: 2 DOSAGE FORM, QD-2 PUMPS OF GEL ONCE DAILY F
     Route: 065
     Dates: start: 202010, end: 2021
  9. ESTRADIOL [Suspect]
     Active Substance: ESTRADIOL
     Dosage: 2 DOSAGE FORM, QD-2 PUMPS OF GEL ONCE DAILY
     Route: 065
     Dates: start: 202311, end: 202311
  10. ESTRADIOL [Suspect]
     Active Substance: ESTRADIOL
     Dosage: 3 DOSAGE FORM, QD-INCREASED TO 3 PUMPS
     Route: 065
     Dates: start: 202311, end: 202311
  11. ESTRADIOL [Suspect]
     Active Substance: ESTRADIOL
     Dosage: 2 DOSAGE FORM, QD-REDUCED TO 2 PUMPS
     Route: 065
     Dates: start: 202311
  12. ESTRADIOL [Suspect]
     Active Substance: ESTRADIOL
     Dosage: 2 DOSAGE FORM, QD-OESTROGEL PUMP PACK-GREEN LID
     Route: 065
     Dates: start: 202411
  13. ESTRADIOL [Suspect]
     Active Substance: ESTRADIOL
     Dosage: 2 DOSAGE FORM, QD
     Route: 065
  14. ESTRADIOL [Suspect]
     Active Substance: ESTRADIOL
     Indication: Hormone replacement therapy
     Dosage: UNKNOWN-CONTI PATCHES
     Route: 065
     Dates: start: 2021
  15. ESTRADIOL [Suspect]
     Active Substance: ESTRADIOL
     Dosage: 1 DOSAGE FORM, 2/WEEK-50 (APPLY 1 PATCH TWICE WEEKLY)
     Route: 065
     Dates: start: 2022, end: 20220707
  16. ESTRADIOL [Suspect]
     Active Substance: ESTRADIOL
     Dosage: 1 DOSAGE FORM, 2/WEEK-100 (APPLY 1 PATCH TWICE WEEKLY)
     Route: 065
     Dates: start: 202308, end: 202311
  17. ESTRADIOL [Suspect]
     Active Substance: ESTRADIOL
     Indication: Hormone replacement therapy
     Dosage: 50 (ONCE WEEKLY PATCHES)
     Route: 065
     Dates: start: 202203, end: 2022

REACTIONS (5)
  - Postmenopausal haemorrhage [Recovered/Resolved]
  - Breast tenderness [Recovered/Resolved]
  - Breast pain [Unknown]
  - Headache [Unknown]
  - Therapeutic product effect decreased [Unknown]

NARRATIVE: CASE EVENT DATE: 20210101
